FAERS Safety Report 6851259-2 (Version None)
Quarter: 2010Q3

REPORT INFORMATION
  Report Type: 
  Country: None (occurrence: None)
  Receive Date: 20100717
  Receipt Date: 20080110
  Transmission Date: 20110219
  Serious: No
  Sender: FDA-Public Use
  Company Number: US-PFIZER INC-2008004905

PATIENT
  Sex: Female
  Weight: 72.7 kg

DRUGS (3)
  1. CHANTIX [Suspect]
     Indication: SMOKING CESSATION THERAPY
     Dates: start: 20071226
  2. HYZAAR [Concomitant]
  3. SIMVASTATIN [Concomitant]

REACTIONS (3)
  - ANXIETY [None]
  - INCORRECT DOSE ADMINISTERED [None]
  - NAUSEA [None]
